FAERS Safety Report 9398997 (Version 1)
Quarter: 2013Q3

REPORT INFORMATION
  Report Type: Spontaneous
  Country: US (occurrence: US)
  Receive Date: 20130714
  Receipt Date: 20130714
  Transmission Date: 20140515
  Serious: No
  Sender: FDA-Public Use
  Company Number: US-009507513-1307USA006506

PATIENT
  Sex: Male

DRUGS (1)
  1. MIRALAX [Suspect]
     Indication: CONSTIPATION
     Dosage: UNK, UNKNOWN
     Route: 048

REACTIONS (3)
  - Diarrhoea [Recovered/Resolved]
  - Drug effect delayed [Recovered/Resolved]
  - Circumstance or information capable of leading to medication error [Recovered/Resolved]
